FAERS Safety Report 6310552-2 (Version None)
Quarter: 2009Q3

REPORT INFORMATION
  Report Type: 
  Country: None (occurrence: None)
  Receive Date: 20090814
  Receipt Date: 20090806
  Transmission Date: 20100115
  Serious: Yes (Hospitalization)
  Sender: FDA-Public Use
  Company Number: BE-ABBOTT-08P-013-0479441-00

PATIENT
  Sex: Female
  Weight: 42 kg

DRUGS (7)
  1. HUMIRA [Suspect]
     Indication: CROHN'S DISEASE
     Route: 058
     Dates: start: 20080516, end: 20080929
  2. HUMIRA [Suspect]
     Route: 058
     Dates: start: 20081008
  3. OMEPRAZOLE [Concomitant]
     Indication: GASTRITIS
     Dates: start: 20080401
  4. ENTOCORT EC [Concomitant]
     Indication: CROHN'S DISEASE
     Dates: start: 20050601
  5. TEMESTA [Concomitant]
     Indication: INSOMNIA
  6. DAFALGAN [Concomitant]
     Indication: ARTHRALGIA
     Dates: start: 20080701
  7. TAVANIC [Concomitant]
     Indication: GASTROENTERITIS
     Dates: start: 20080710, end: 20080720

REACTIONS (1)
  - GASTRITIS [None]
